FAERS Safety Report 10161599 (Version 1)
Quarter: 2014Q2

REPORT INFORMATION
  Report Type: Spontaneous
  Country: US (occurrence: US)
  Receive Date: 20140509
  Receipt Date: 20140509
  Transmission Date: 20141212
  Serious: No
  Sender: FDA-Public Use
  Company Number: US-009507513-1405USA004534

PATIENT
  Sex: Female

DRUGS (2)
  1. CLARITIN-D [Suspect]
     Indication: PRODUCT USED FOR UNKNOWN INDICATION
     Dosage: UNK, UNKNOWN
     Route: 048
     Dates: start: 201401, end: 201403
  2. CLARITIN-D [Suspect]
     Dosage: UNK

REACTIONS (1)
  - Alopecia [Not Recovered/Not Resolved]
